FAERS Safety Report 8495896-0 (Version None)
Quarter: 2012Q3

REPORT INFORMATION
  Report Type: 
  Country: None (occurrence: None)
  Receive Date: 20120709
  Receipt Date: 20120706
  Transmission Date: 20120928
  Serious: Yes (Death, Other)
  Sender: FDA-Public Use
  Company Number: PHHY2012KR031813

PATIENT
  Age: 56 Year
  Sex: Male
  Weight: 98 kg

DRUGS (6)
  1. CANDESARTAN CILEXETIL [Interacting]
     Dosage: 16 MG, QD
  2. BETAXOLOL [Concomitant]
     Dosage: 10 MG, QD
  3. LACTULOSE [Concomitant]
     Dosage: 30 ML, QD
  4. FLUVASTATIN SODIUM [Suspect]
     Dosage: 20 MG, QD
  5. ENTECAVIR [Concomitant]
     Dosage: 0.5 MG, QD
  6. ACETYLSALICYLIC ACID SRT [Interacting]
     Dosage: 100 MG, QD

REACTIONS (12)
  - BLOOD BILIRUBIN INCREASED [None]
  - BLOOD CREATINE PHOSPHOKINASE INCREASED [None]
  - ALANINE AMINOTRANSFERASE INCREASED [None]
  - RHABDOMYOLYSIS [None]
  - TENDERNESS [None]
  - HEPATIC FUNCTION ABNORMAL [None]
  - CONDITION AGGRAVATED [None]
  - DRUG INTERACTION [None]
  - BLOOD CREATINE PHOSPHOKINASE MB INCREASED [None]
  - RENAL FAILURE [None]
  - ASPARTATE AMINOTRANSFERASE INCREASED [None]
  - PROTHROMBIN TIME PROLONGED [None]
